FAERS Safety Report 7725825-6 (Version None)
Quarter: 2011Q3

REPORT INFORMATION
  Report Type: 
  Country: None (occurrence: None)
  Receive Date: 20110902
  Receipt Date: 20110822
  Transmission Date: 20111222
  Serious: Yes (Hospitalization)
  Sender: FDA-Public Use
  Company Number: FR-PFIZER INC-2011196546

PATIENT
  Age: 90 Year
  Sex: Female

DRUGS (9)
  1. OLMESARTAN MEDOXOMIL [Suspect]
     Dosage: 12.5 MG, 1X/DAY
     Route: 048
     Dates: end: 20110801
  2. PANTOPRAZOLE [Suspect]
     Dosage: 20 MG, 1X/DAY
     Route: 048
     Dates: start: 20110707, end: 20110801
  3. OLMESARTAN MEDOXOMIL [Suspect]
     Dosage: 20 MG, 1X/DAY
     Route: 048
     Dates: end: 20110801
  4. NICARDIPINE HCL [Concomitant]
  5. PRAXILENE [Concomitant]
  6. CORDARONE [Concomitant]
  7. DEBRIDAT ^IBRAHIM^ [Concomitant]
  8. FERROUS FUMARATE [Suspect]
     Dosage: 160 MG, 1X/DAY
     Route: 048
     Dates: start: 20110707, end: 20110801
  9. ASPEGIC 325 [Concomitant]

REACTIONS (1)
  - LEUKOCYTOCLASTIC VASCULITIS [None]
